FAERS Safety Report 9317476 (Version 1)
Quarter: 2013Q2

REPORT INFORMATION
  Report Type: Spontaneous
  Country: US (occurrence: US)
  Receive Date: 20130530
  Receipt Date: 20130530
  Transmission Date: 20140414
  Serious: No
  Sender: FDA-Public Use
  Company Number: US-NOVEN-12US005113

PATIENT
  Age: 15 Year
  Sex: Female
  Weight: 49.89 kg

DRUGS (1)
  1. DAYTRANA [Suspect]
     Indication: ATTENTION DEFICIT/HYPERACTIVITY DISORDER
     Dosage: 10 MG, UNK
     Route: 062
     Dates: start: 20120811

REACTIONS (3)
  - Drug dose omission [Unknown]
  - Product quality issue [Not Recovered/Not Resolved]
  - No adverse event [Unknown]
